FAERS Safety Report 6398223-8 (Version None)
Quarter: 2009Q4

REPORT INFORMATION
  Report Type: 
  Country: None (occurrence: None)
  Receive Date: 20091013
  Receipt Date: 20090930
  Transmission Date: 20100525
  Serious: Yes (Hospitalization, Disabling)
  Sender: FDA-Public Use
  Company Number: PHHY2008JP13469

PATIENT
  Sex: Male
  Weight: 52 kg

DRUGS (4)
  1. ZOMETA [Suspect]
     Indication: MULTIPLE MYELOMA
     Dosage: 4MG WITH 100 ML OF SALINE
     Route: 042
     Dates: start: 20080701, end: 20080701
  2. MAXIPIME [Suspect]
     Indication: PYREXIA
     Dosage: 1G WITH 100 ML OF SALINE, TWICW DAILY
     Route: 042
     Dates: start: 20080702, end: 20080704
  3. LOXOPROFEN SODIUM [Suspect]
     Indication: PYREXIA
     Dosage: 60 MG
     Route: 048
     Dates: start: 20080702, end: 20080703
  4. BORTEZOMIB [Concomitant]

REACTIONS (23)
  - ALOPECIA [None]
  - BIOPSY KIDNEY ABNORMAL [None]
  - BLOOD CREATININE INCREASED [None]
  - BLOOD PRESSURE DECREASED [None]
  - DECREASED APPETITE [None]
  - DIALYSIS [None]
  - DISEASE PROGRESSION [None]
  - DRY MOUTH [None]
  - HAEMATOCRIT DECREASED [None]
  - HAEMOGLOBIN DECREASED [None]
  - HYPOKALAEMIA [None]
  - INFECTION [None]
  - MALAISE [None]
  - NEPHROPATHY [None]
  - OLIGURIA [None]
  - PLATELET COUNT DECREASED [None]
  - PYREXIA [None]
  - RED BLOOD CELL COUNT DECREASED [None]
  - RENAL FAILURE ACUTE [None]
  - RENAL IMPAIRMENT [None]
  - RENAL TUBULAR NECROSIS [None]
  - URINARY CASTS PRESENT [None]
  - URINE OUTPUT DECREASED [None]
